FAERS Safety Report 12822248 (Version 1)
Quarter: 2016Q4

REPORT INFORMATION
  Report Type: Other
  Country: US (occurrence: US)
  Receive Date: 20161007
  Receipt Date: 20161007
  Transmission Date: 20170207
  Serious: Yes (Other)
  Sender: FDA-Public Use
  Company Number: US-GAVIS PHARMACEUTICALS, LLC-2016-04520

PATIENT
  Age: 36 Year
  Sex: Female

DRUGS (4)
  1. TRIAMCINOLONE ACETATE+PREDNISOLONE [Concomitant]
     Indication: AUTOIMMUNE UVEITIS
     Route: 065
  2. FLUOCINOLONE ACETONIDE. [Suspect]
     Active Substance: FLUOCINOLONE ACETONIDE
     Route: 047
  3. METHAZOLAMIDE. [Concomitant]
     Active Substance: METHAZOLAMIDE
     Indication: CYSTOID MACULAR OEDEMA
     Route: 065
  4. FLUOCINOLONE ACETONIDE. [Suspect]
     Active Substance: FLUOCINOLONE ACETONIDE
     Indication: AUTOIMMUNE UVEITIS
     Route: 047

REACTIONS (1)
  - Glaucoma [Unknown]
